FAERS Safety Report 17501246 (Version 1)
Quarter: 2020Q1

REPORT INFORMATION
  Report Type: Spontaneous
  Country: US (occurrence: US)
  Receive Date: 20200304
  Receipt Date: 20200304
  Transmission Date: 20200409
  Serious: Yes (Other)
  Sender: FDA-Public Use
  Company Number: None

PATIENT
  Age: 82 Year
  Weight: 78.3 kg

DRUGS (14)
  1. OPIUM. [Concomitant]
     Active Substance: OPIUM
  2. LANTUS [Concomitant]
     Active Substance: INSULIN GLARGINE
  3. METFORMIN [Concomitant]
     Active Substance: METFORMIN HYDROCHLORIDE
  4. FLUTICASONE PROPIONATE 50 MCG/ACT [Concomitant]
  5. OXYCODONE 5 MG [Concomitant]
     Active Substance: OXYCODONE
  6. PROLIA [Concomitant]
     Active Substance: DENOSUMAB
  7. ZETIA 10 MG [Concomitant]
  8. LOSARTAN 50 MG [Concomitant]
     Active Substance: LOSARTAN
  9. FLOMAX 0.4MG [Concomitant]
  10. GABAPENTIN 100 MG [Concomitant]
     Active Substance: GABAPENTIN
  11. AFINITOR [Suspect]
     Active Substance: EVEROLIMUS
     Indication: NEUROENDOCRINE TUMOUR
     Route: 048
  12. CRESTOR [Concomitant]
     Active Substance: ROSUVASTATIN CALCIUM
  13. OMEPRAZOLE 20 MG [Concomitant]
     Active Substance: OMEPRAZOLE
  14. TESTOSTERONE 50 MG/ML [Concomitant]

REACTIONS (1)
  - Disease progression [None]

NARRATIVE: CASE EVENT DATE: 20200304
